FAERS Safety Report 16227130 (Version 2)
Quarter: 2025Q2

REPORT INFORMATION
  Report Type: Spontaneous
  Country: FR (occurrence: FR)
  Receive Date: 20190423
  Receipt Date: 20250605
  Transmission Date: 20250717
  Serious: Yes (Other)
  Sender: AUROBINDO
  Company Number: FR-AUROBINDO-AUR-APL-2019-021647

PATIENT
  Age: 10 Year
  Sex: Female

DRUGS (4)
  1. CLARITHROMYCIN [Interacting]
     Active Substance: CLARITHROMYCIN
     Indication: Mycobacterium avium complex infection
     Route: 065
  2. RIFABUTIN [Interacting]
     Active Substance: RIFABUTIN
     Indication: Mycobacterium avium complex infection
     Dosage: 150 MILLIGRAM, ONCE A DAY
     Route: 048
  3. RIFABUTIN [Interacting]
     Active Substance: RIFABUTIN
     Dosage: 100 MILLIGRAM, ONCE A DAY
     Route: 048
  4. ETHAMBUTOL [Concomitant]
     Active Substance: ETHAMBUTOL HYDROCHLORIDE
     Indication: Mycobacterium avium complex infection
     Route: 065

REACTIONS (2)
  - Uveitis [Recovered/Resolved]
  - Hypopyon [Recovered/Resolved]
